FAERS Safety Report 11214709 (Version 2)
Quarter: 2015Q3

REPORT INFORMATION
  Report Type: Spontaneous
  Country: FR (occurrence: FR)
  Receive Date: 20150624
  Receipt Date: 20150723
  Transmission Date: 20151125
  Serious: Yes (Hospitalization)
  Sender: FDA-Public Use
  Company Number: FR-ROCHE-1598191

PATIENT
  Age: 51 Year
  Sex: Male

DRUGS (6)
  1. AVASTIN [Suspect]
     Active Substance: BEVACIZUMAB
     Route: 065
     Dates: start: 20150313, end: 20150313
  2. AVASTIN [Suspect]
     Active Substance: BEVACIZUMAB
     Indication: GLIOBLASTOMA
     Route: 065
     Dates: start: 201405
  3. BELUSTINE [Suspect]
     Active Substance: LOMUSTINE
     Route: 048
     Dates: start: 201501
  4. BELUSTINE [Suspect]
     Active Substance: LOMUSTINE
     Route: 048
     Dates: start: 20150313, end: 20150313
  5. BELUSTINE [Suspect]
     Active Substance: LOMUSTINE
     Indication: GLIOBLASTOMA
     Route: 048
     Dates: start: 201405
  6. AVASTIN [Suspect]
     Active Substance: BEVACIZUMAB
     Route: 065
     Dates: start: 201501

REACTIONS (3)
  - Hepatitis cholestatic [Not Recovered/Not Resolved]
  - Abdominal pain [Recovered/Resolved]
  - Pancreatitis acute [Recovered/Resolved]

NARRATIVE: CASE EVENT DATE: 20150320
